FAERS Safety Report 15440509 (Version 1)
Quarter: 2018Q3

REPORT INFORMATION
  Report Type: Report from Study
  Country: IN (occurrence: IN)
  Receive Date: 20180928
  Receipt Date: 20180928
  Transmission Date: 20181010
  Serious: Yes (Other)
  Sender: FDA-Public Use
  Company Number: PHHY2018IN105642

PATIENT
  Age: 43 Year
  Sex: Male
  Weight: 80 kg

DRUGS (1)
  1. TASIGNA [Suspect]
     Active Substance: NILOTINIB
     Indication: CHRONIC MYELOID LEUKAEMIA
     Dosage: 400 MG, BID
     Route: 048
     Dates: start: 20180108, end: 20180831

REACTIONS (3)
  - Platelet count increased [Recovered/Resolved]
  - Drug resistance [Not Recovered/Not Resolved]
  - Gene mutation identification test positive [Not Recovered/Not Resolved]

NARRATIVE: CASE EVENT DATE: 201806
